FAERS Safety Report 14835820 (Version 1)
Quarter: 2018Q2

REPORT INFORMATION
  Report Type: Spontaneous
  Country: US (occurrence: US)
  Receive Date: 20180502
  Receipt Date: 20180502
  Transmission Date: 20180711
  Serious: Yes (Death)
  Sender: FDA-Public Use
  Company Number: US-BAUSCH-BL-2018-012271

PATIENT
  Age: 54 Year
  Sex: Male

DRUGS (3)
  1. PACLITAXEL. [Suspect]
     Active Substance: PACLITAXEL
     Indication: CHEMOTHERAPY
     Route: 065
  2. 5-FLUOROURACIL [Suspect]
     Active Substance: FLUOROURACIL
     Indication: CHEMOTHERAPY
     Route: 065
  3. HYDROXYUREA. [Suspect]
     Active Substance: HYDROXYUREA
     Indication: CHEMOTHERAPY
     Route: 065

REACTIONS (5)
  - Acute kidney injury [Fatal]
  - Dihydropyrimidine dehydrogenase deficiency [Fatal]
  - Haemodynamic instability [Fatal]
  - Sepsis [Fatal]
  - Tongue exfoliation [Fatal]
